FAERS Safety Report 9284520 (Version 1)
Quarter: 2013Q2

REPORT INFORMATION
  Report Type: Spontaneous
  Country: US (occurrence: US)
  Receive Date: 20130510
  Receipt Date: 20130510
  Transmission Date: 20140414
  Serious: Yes (Hospitalization)
  Sender: FDA-Public Use
  Company Number: US-TEVA-403825USA

PATIENT
  Age: 80 Year
  Sex: Female

DRUGS (1)
  1. AMIODARONE [Suspect]
     Indication: ATRIAL FIBRILLATION
     Dosage: 200MG DAILY, AFTER APPROPRIATE LOADING
     Route: 065

REACTIONS (3)
  - Electrocardiogram T wave abnormal [Unknown]
  - Electrocardiogram U-wave abnormality [Unknown]
  - Electrocardiogram QT prolonged [Unknown]
